FAERS Safety Report 7683588-7 (Version None)
Quarter: 2011Q3

REPORT INFORMATION
  Report Type: 
  Country: None (occurrence: None)
  Receive Date: 20110809
  Receipt Date: 20110803
  Transmission Date: 20111222
  Serious: Yes (Hospitalization)
  Sender: FDA-Public Use
  Company Number: 2011028838

PATIENT
  Age: 14 Year
  Sex: Female
  Weight: 70.3075 kg

DRUGS (9)
  1. BERINERT [Suspect]
     Indication: ENZYME ABNORMALITY
     Dosage: SEE IMAGE
     Route: 042
     Dates: start: 20110408
  2. BERINERT [Suspect]
     Indication: ENZYME ABNORMALITY
     Dosage: SEE IMAGE
     Route: 042
     Dates: start: 20110701
  3. LYSTEDA (TRANEXAMIC ACID) [Concomitant]
  4. PREDNISONE (PREDNSONE) [Concomitant]
  5. BERINERT [Suspect]
  6. NEURONTIN [Concomitant]
  7. CETIRIZINE HCL [Concomitant]
  8. NAPROXEN [Concomitant]
  9. NEXIUM [Concomitant]

REACTIONS (4)
  - HEREDITARY ANGIOEDEMA [None]
  - ABDOMINAL PAIN UPPER [None]
  - HEADACHE [None]
  - SINUSITIS [None]
